FAERS Safety Report 5792405-1 (Version None)
Quarter: 2008Q2

REPORT INFORMATION
  Report Type: 
  Country: None (occurrence: None)
  Receive Date: 20080626
  Receipt Date: 20080403
  Transmission Date: 20081010
  Serious: No
  Sender: FDA-Public Use
  Company Number: US-ASTRAZENECA-2008UW06733

PATIENT
  Age: 5 Year
  Sex: Male
  Weight: 27.2 kg

DRUGS (2)
  1. PULMICORT FLEXHALER [Suspect]
     Indication: ASTHMA
     Route: 055
  2. ALBUTEROL [Concomitant]
     Dosage: 1 TSP (2MG/5ML) TID PRN

REACTIONS (2)
  - FLUSHING [None]
  - PSYCHOMOTOR HYPERACTIVITY [None]
